FAERS Safety Report 11121737 (Version 1)
Quarter: 2015Q2

REPORT INFORMATION
  Report Type: Spontaneous
  Country: US (occurrence: US)
  Receive Date: 20150519
  Receipt Date: 20150519
  Transmission Date: 20150821
  Serious: No
  Sender: FDA-Public Use
  Company Number: US-ASTRAZENECA-2015BM00044

PATIENT
  Sex: Male
  Weight: 100.7 kg

DRUGS (3)
  1. LANTUS [Concomitant]
     Active Substance: INSULIN GLARGINE
     Indication: DIABETES MELLITUS
     Dosage: 80
  2. NOVLOG [Concomitant]
     Indication: DIABETES MELLITUS
     Dosage: 23
  3. BYDUREON [Suspect]
     Active Substance: EXENATIDE
     Indication: TYPE 2 DIABETES MELLITUS
     Route: 058
     Dates: start: 201410

REACTIONS (3)
  - Nausea [Not Recovered/Not Resolved]
  - Injection site injury [Unknown]
  - Carpal tunnel syndrome [Unknown]
